FAERS Safety Report 8460276-0 (Version None)
Quarter: 2012Q2

REPORT INFORMATION
  Report Type: 
  Country: None (occurrence: None)
  Receive Date: 20120622
  Receipt Date: 20120611
  Transmission Date: 20120825
  Serious: Yes (Death, Hospitalization)
  Sender: FDA-Public Use
  Company Number: US-ACTELION-A-US2012-65349

PATIENT

DRUGS (7)
  1. TRACLEER [Suspect]
     Indication: PULMONARY ARTERIAL HYPERTENSION
     Dosage: UNK
     Route: 048
     Dates: start: 20081110
  2. MULTAQ [Concomitant]
  3. SILDENAFIL [Concomitant]
     Indication: PULMONARY ARTERIAL HYPERTENSION
  4. CALCIUM CHANNEL BLOCKERS [Concomitant]
  5. REMODULIN [Suspect]
  6. COUMADIN [Concomitant]
  7. OXYGEN [Concomitant]

REACTIONS (3)
  - DEATH [None]
  - HIP FRACTURE [None]
  - PELVIC FRACTURE [None]
